FAERS Safety Report 5278194-8 (Version None)
Quarter: 2007Q1

REPORT INFORMATION
  Report Type: 
  Country: None (occurrence: None)
  Receive Date: 20061213
  Receipt Date: 20060523
  Transmission Date: 20070707
  Serious: No
  Sender: FDA-Public Use
  Company Number: 2006UW09895

PATIENT
  Age: 70 Year
  Sex: Male
  Weight: 69.8539 kg

DRUGS (9)
  1. SEROQUEL [Suspect]
     Dosage: 25 MG DAILY PO
     Route: 048
  2. AVODART [Suspect]
     Indication: BENIGN PROSTATIC HYPERPLASIA
     Dosage: 0.5 MG DAILY PO
     Route: 048
     Dates: start: 20060225, end: 20060303
  3. FLOMAX [Concomitant]
  4. SINEMET [Concomitant]
  5. CARBACHOL [Concomitant]
  6. SYNTHROID [Concomitant]
  7. DILTIAZEM HYDROCHLORIDE [Concomitant]
  8. PROAMATINE [Concomitant]
  9. ASPIRIN [Concomitant]

REACTIONS (2)
  - HALLUCINATION [None]
  - ORTHOSTATIC HYPOTENSION [None]
